FAERS Safety Report 12317817 (Version 2)
Quarter: 2016Q2

REPORT INFORMATION
  Report Type: Spontaneous
  Country: IT (occurrence: IT)
  Receive Date: 20160429
  Receipt Date: 20160530
  Transmission Date: 20160815
  Serious: Yes (Other)
  Sender: FDA-Public Use
  Company Number: IT-SUN PHARMACEUTICAL INDUSTRIES LTD-2016R1-115779

PATIENT
  Age: 66 Year
  Sex: Female

DRUGS (2)
  1. DEXAMETHASONE. [Suspect]
     Active Substance: DEXAMETHASONE
     Indication: PLASMA CELL LEUKAEMIA
     Dosage: 40 MG, LOW-DOSE ON DAYS 1, 8, 15 AND 22 OF EACH 28-DAY CYCLE
     Route: 065
  2. POMALIDOMIDE [Suspect]
     Active Substance: POMALIDOMIDE
     Indication: PLASMA CELL LEUKAEMIA
     Dosage: 4 MG, ON DAYS 1-21 OF REPEATED 28-DAY CYCLES
     Route: 048

REACTIONS (2)
  - Neutropenia [Recovered/Resolved]
  - Fatigue [Recovered/Resolved]
